FAERS Safety Report 5367810-8 (Version None)
Quarter: 2007Q2

REPORT INFORMATION
  Report Type: 
  Country: None (occurrence: None)
  Receive Date: 20070622
  Receipt Date: 20070619
  Transmission Date: 20071010
  Serious: Yes (Death, Other)
  Sender: FDA-Public Use
  Company Number: DE-BRISTOL-MYERS SQUIBB COMPANY-13744339

PATIENT
  Age: 30 Year
  Sex: Female

DRUGS (7)
  1. LYSODREN TABS [Suspect]
     Indication: ADRENOCORTICAL CARCINOMA
     Route: 048
     Dates: start: 20050330, end: 20070227
  2. LEVOTHYROXINE SODIUM [Concomitant]
     Route: 048
  3. HYDROCORTISONE [Concomitant]
     Route: 048
  4. MIRTAZAPINE [Concomitant]
     Route: 048
  5. FERRO SANOL [Concomitant]
     Route: 048
  6. CALCIUM CHLORIDE [Concomitant]
     Route: 048
  7. FRAGMIN [Concomitant]
     Route: 058

REACTIONS (4)
  - DRUG LEVEL INCREASED [None]
  - MALIGNANT NEOPLASM PROGRESSION [None]
  - SPEECH DISORDER [None]
  - TREMOR [None]
